FAERS Safety Report 14077148 (Version 3)
Quarter: 2017Q4

REPORT INFORMATION
  Report Type: Report from Study
  Country: US (occurrence: US)
  Receive Date: 20171012
  Receipt Date: 20171026
  Transmission Date: 20180321
  Serious: Yes (Death, Hospitalization, Other)
  Sender: FDA-Public Use
  Company Number: US-BRISTOL-MYERS SQUIBB COMPANY-BMS-2017-089025

PATIENT
  Age: 74 Year
  Sex: Male
  Weight: 94.2 kg

DRUGS (1)
  1. NIVOLUMAB [Suspect]
     Active Substance: NIVOLUMAB
     Indication: SQUAMOUS CELL CARCINOMA OF LUNG
     Dosage: 240 MG, Q2WK
     Route: 042
     Dates: start: 20170818, end: 20170831

REACTIONS (4)
  - Respiratory failure [Fatal]
  - Hepatitis [Recovering/Resolving]
  - Acute myocardial infarction [Recovering/Resolving]
  - Myositis [Unknown]

NARRATIVE: CASE EVENT DATE: 20170911
